FAERS Safety Report 7723530-3 (Version None)
Quarter: 2011Q3

REPORT INFORMATION
  Report Type: 
  Country: None (occurrence: None)
  Receive Date: 20110901
  Receipt Date: 20110818
  Transmission Date: 20111222
  Serious: Yes (Other)
  Sender: FDA-Public Use
  Company Number: PHEH2011US02029

PATIENT
  Sex: Female

DRUGS (5)
  1. DIOVAN [Suspect]
     Dosage: 40 MG, UNK
  2. DIOVAN [Suspect]
     Dosage: 60 MG, UNK
  3. PREMARIN [Concomitant]
     Dosage: 0.3 MG, UNK
  4. DIOVAN [Suspect]
     Dosage: 80 MG, ONCE IN A DAY
  5. VITAMINS NOS [Concomitant]
     Dosage: UNK UKN, UNK

REACTIONS (3)
  - EXTRASYSTOLES [None]
  - INSOMNIA [None]
  - DRUG HYPERSENSITIVITY [None]
